FAERS Safety Report 15170678 (Version 3)
Quarter: 2018Q4

REPORT INFORMATION
  Report Type: Spontaneous
  Country: US (occurrence: US)
  Receive Date: 20180720
  Receipt Date: 20181005
  Transmission Date: 20190204
  Serious: Yes (Other)
  Sender: FDA-Public Use
  Company Number: US-ALLERGAN-1829652US

PATIENT
  Age: 72 Year
  Sex: Female

DRUGS (5)
  1. FIBER [Concomitant]
     Active Substance: PSYLLIUM HUSK
     Indication: GASTROINTESTINAL DISORDER
     Dosage: UNK
     Route: 048
  2. OXYCODONE [Concomitant]
     Active Substance: OXYCODONE
     Dosage: UNK, PRN
     Route: 048
  3. XANAX [Concomitant]
     Active Substance: ALPRAZOLAM
     Indication: ANXIETY
     Dosage: UNK, PRN
     Route: 048
     Dates: start: 1984
  4. LAMICTAL [Concomitant]
     Active Substance: LAMOTRIGINE
     Indication: AFFECTIVE DISORDER
     Dosage: UNK, QHS
     Route: 048
  5. LINZESS [Suspect]
     Active Substance: LINACLOTIDE
     Indication: CONSTIPATION
     Dosage: 145 ?G, UNK
     Route: 048
     Dates: start: 20180601, end: 20180625

REACTIONS (8)
  - Skin odour abnormal [Recovered/Resolved]
  - Discomfort [Recovered/Resolved]
  - Autonomic nervous system imbalance [Recovered/Resolved]
  - Flatulence [Recovered/Resolved]
  - Gastrointestinal motility disorder [Recovered/Resolved]
  - Cognitive disorder [Recovered/Resolved]
  - Fatigue [Recovered/Resolved]
  - Constipation [Recovered/Resolved]

NARRATIVE: CASE EVENT DATE: 20180601
